FAERS Safety Report 9263151 (Version 1)
Quarter: 2013Q2

REPORT INFORMATION
  Report Type: Spontaneous
  Country: DE (occurrence: DE)
  Receive Date: 20130430
  Receipt Date: 20130430
  Transmission Date: 20140414
  Serious: Yes (Hospitalization)
  Sender: FDA-Public Use
  Company Number: DE-TEVA-398503GER

PATIENT
  Age: 8 Year
  Sex: Male
  Weight: 32 kg

DRUGS (2)
  1. MINOCYCLINE [Suspect]
     Indication: BORRELIA INFECTION
     Dosage: 100 MILLIGRAM DAILY;
     Route: 048
     Dates: start: 20120906, end: 20120911
  2. CHOLESTYRAMIN [Concomitant]
     Indication: BORRELIA INFECTION
     Dosage: 8 DOSAGE FORMS DAILY; 0-4-0-4-0
     Route: 048
     Dates: start: 20120903, end: 20120911

REACTIONS (2)
  - Loss of consciousness [Recovered/Resolved]
  - Syncope [Recovered/Resolved]
